FAERS Safety Report 18430780 (Version 1)
Quarter: 2020Q4

REPORT INFORMATION
  Report Type: Spontaneous
  Country: RU (occurrence: RU)
  Receive Date: 20201027
  Receipt Date: 20201027
  Transmission Date: 20210114
  Serious: Yes (Death, Hospitalization)
  Sender: FDA-Public Use
  Company Number: RU-TEVA-2020-RU-1842511

PATIENT
  Age: 33 Year
  Sex: Female

DRUGS (1)
  1. CISPLATIN-TEVA [Suspect]
     Active Substance: CISPLATIN
     Indication: CERVIX CARCINOMA
     Route: 065

REACTIONS (2)
  - Multiple organ dysfunction syndrome [Fatal]
  - Peritonitis [Fatal]

NARRATIVE: CASE EVENT DATE: 20200703
